FAERS Safety Report 20448766 (Version 1)
Quarter: 2022Q1

REPORT INFORMATION
  Report Type: Spontaneous
  Country: US (occurrence: None)
  Receive Date: 20220208
  Receipt Date: 20220208
  Transmission Date: 20220423
  Serious: Yes (Hospitalization)
  Sender: FDA-Public Use
  Company Number: None

PATIENT
  Sex: Female

DRUGS (5)
  1. TADALAFIL [Suspect]
     Active Substance: TADALAFIL
     Indication: Haemophagocytic lymphohistiocytosis
     Dosage: FREQUENCY : DAILY;?
     Route: 048
     Dates: start: 202112
  2. TADALAFIL [Suspect]
     Active Substance: TADALAFIL
     Indication: Pulmonary hypertension
  3. TADALAFIL [Suspect]
     Active Substance: TADALAFIL
     Indication: Pulmonary arterial hypertension
  4. TADALAFIL [Suspect]
     Active Substance: TADALAFIL
     Indication: Neutropenia
  5. TADALAFIL [Suspect]
     Active Substance: TADALAFIL
     Indication: Rheumatoid arthritis

REACTIONS (1)
  - Hospitalisation [None]
